FAERS Safety Report 16154948 (Version 1)
Quarter: 2019Q2

REPORT INFORMATION
  Report Type: Spontaneous
  Country: US (occurrence: US)
  Receive Date: 20190403
  Receipt Date: 20190403
  Transmission Date: 20190711
  Serious: Yes (Other)
  Sender: FDA-Public Use
  Company Number: US-SHIRE-US201910838

PATIENT
  Sex: Female

DRUGS (1)
  1. LIALDA [Suspect]
     Active Substance: MESALAMINE
     Indication: COLITIS ULCERATIVE
     Dosage: 1.2 G TABLET IN THE MORNING WITH FOOD, AND ONE 1.2G TABLET IN THE EVENING WITH FOOD
     Route: 065

REACTIONS (6)
  - Atrioventricular block [Unknown]
  - Off label use [Unknown]
  - Vitiligo [Unknown]
  - Myocardial infarction [Unknown]
  - Blood cholesterol abnormal [Unknown]
  - Confusional state [Unknown]

NARRATIVE: CASE EVENT DATE: 2014
